FAERS Safety Report 17032249 (Version 1)
Quarter: 2019Q4

REPORT INFORMATION
  Report Type: Spontaneous
  Country: CA (occurrence: CA)
  Receive Date: 20191114
  Receipt Date: 20191114
  Transmission Date: 20200122
  Serious: Yes (Other)
  Sender: FDA-Public Use
  Company Number: NVSC2019CA002541

PATIENT
  Age: 11 Year
  Sex: Male

DRUGS (1)
  1. KYMRIAH [Suspect]
     Active Substance: TISAGENLECLEUCEL
     Indication: ACUTE LYMPHOCYTIC LEUKAEMIA
     Dosage: (RE-INFUSION AFTER 6 MONTHS)
     Route: 065

REACTIONS (4)
  - Expired product administered [Unknown]
  - B-lymphocyte count abnormal [Recovered/Resolved]
  - B-lymphocyte count abnormal [Unknown]
  - B-cell aplasia [Unknown]
